FAERS Safety Report 6259215-2 (Version None)
Quarter: 2009Q3

REPORT INFORMATION
  Report Type: 
  Country: None (occurrence: None)
  Receive Date: 20090702
  Receipt Date: 20090619
  Transmission Date: 20100115
  Serious: Yes (Death, Hospitalization)
  Sender: FDA-Public Use
  Company Number: 8048089

PATIENT
  Age: 80 Year
  Sex: Female
  Weight: 46.2 kg

DRUGS (8)
  1. CIMZIA [Suspect]
     Indication: CROHN'S DISEASE
     Dosage: 400 MG SC
     Route: 058
  2. MERCAPTOPURINE [Concomitant]
  3. CLONIDINE [Concomitant]
  4. TRICOR [Concomitant]
  5. COUMADIN [Concomitant]
  6. LISINOPRIL [Concomitant]
  7. PREDNISONE TAB [Concomitant]
  8. AMIODARONE HCL [Concomitant]

REACTIONS (1)
  - PNEUMONIA [None]
